FAERS Safety Report 4518907-3 (Version None)
Quarter: 2004Q4

REPORT INFORMATION
  Report Type: 
  Country: None (occurrence: None)
  Receive Date: 20041201
  Receipt Date: 20041119
  Transmission Date: 20050328
  Serious: Yes (Other)
  Sender: FDA-Public Use
  Company Number: 2004UW23847

PATIENT

DRUGS (2)
  1. SEROQUEL [Suspect]
  2. ZYPREXA [Suspect]

REACTIONS (1)
  - NEUTROPENIA [None]
